FAERS Safety Report 8859589 (Version 1)
Quarter: 2012Q4

REPORT INFORMATION
  Report Type: Spontaneous
  Country: US (occurrence: None)
  Receive Date: 20121023
  Receipt Date: 20121023
  Transmission Date: 20130627
  Serious: Yes (Hospitalization)
  Sender: FDA-Public Use
  Company Number: PIR#CC400156048

PATIENT
  Age: 41 Year

DRUGS (1)
  1. BALANCED SALT SOLUTION [Suspect]

REACTIONS (1)
  - Eye infection fungal [None]
